FAERS Safety Report 11404442 (Version 2)
Quarter: 2015Q3

REPORT INFORMATION
  Report Type: Spontaneous
  Country: US (occurrence: US)
  Receive Date: 20150821
  Receipt Date: 20150916
  Transmission Date: 20151125
  Serious: Yes (Other)
  Sender: FDA-Public Use
  Company Number: US-PFIZER INC-2015265997

PATIENT
  Age: 62 Year
  Sex: Male

DRUGS (3)
  1. SUTENT [Suspect]
     Active Substance: SUNITINIB MALATE
     Indication: RENAL CELL CARCINOMA
     Dosage: 50 MG, CYCLIC: 1X/DAY (4-2 DOSING SCHEDULE)
     Dates: start: 2013
  2. SUTENT [Suspect]
     Active Substance: SUNITINIB MALATE
     Dosage: 50 MG, 1X/DAY
  3. SUTENT [Suspect]
     Active Substance: SUNITINIB MALATE
     Dosage: 50 MG, 1X/DAY

REACTIONS (4)
  - Diarrhoea [Recovered/Resolved]
  - Ageusia [Recovered/Resolved]
  - Diabetes mellitus [Unknown]
  - Tongue disorder [Recovered/Resolved]

NARRATIVE: CASE EVENT DATE: 201307
